FAERS Safety Report 18669677 (Version 1)
Quarter: 2020Q4

REPORT INFORMATION
  Report Type: Spontaneous
  Country: KR (occurrence: KR)
  Receive Date: 20201228
  Receipt Date: 20201228
  Transmission Date: 20210114
  Serious: Yes (Life-Threatening, Hospitalization, Other)
  Sender: FDA-Public Use
  Company Number: KR-ALKEM LABORATORIES LIMITED-KR-ALKEM-2020-00399

PATIENT
  Age: 64 Year
  Sex: Female
  Weight: 52 kg

DRUGS (8)
  1. METHYLPREDNISOLONE. [Suspect]
     Active Substance: METHYLPREDNISOLONE
     Indication: PEMPHIGUS
     Dosage: 1 DOSAGE FORM, OD
     Route: 048
     Dates: start: 20180627, end: 20180708
  2. SODIUM CHLORIDE. [Concomitant]
     Active Substance: SODIUM CHLORIDE
     Indication: PEMPHIGUS
     Dosage: 500 MILLILITER (2 PER WEEK)
     Route: 042
     Dates: start: 20180725, end: 20180807
  3. MYCOPHENOLATE MOFETIL. [Suspect]
     Active Substance: MYCOPHENOLATE MOFETIL
     Indication: PEMPHIGUS
     Dosage: 2 DOSAGE FORM, OD
     Route: 048
     Dates: start: 20180709, end: 20181010
  4. METHYLPREDNISOLONE. [Suspect]
     Active Substance: METHYLPREDNISOLONE
     Dosage: 1 DOSAGE FORM, OD
     Route: 048
     Dates: start: 20181128, end: 20190719
  5. METHYLPREDNISOLONE. [Suspect]
     Active Substance: METHYLPREDNISOLONE
     Dosage: 1 DOSAGE FORM, OD
     Route: 048
     Dates: start: 20180709, end: 20181127
  6. RITUXIMAB 1G [Suspect]
     Active Substance: RITUXIMAB
     Indication: PEMPHIGUS
     Dosage: 2 DOSAGE FORM (2 PER WEEK)
     Route: 042
     Dates: start: 20180725, end: 20180807
  7. RITUXIMAB 1G [Suspect]
     Active Substance: RITUXIMAB
     Dosage: 2 DOSAGE FORM (2 PER WEEK)
     Route: 042
     Dates: start: 20180808, end: 20180821
  8. SODIUM CHLORIDE. [Concomitant]
     Active Substance: SODIUM CHLORIDE
     Dosage: 500 MILLILITER (2 PER WEEK)
     Route: 042
     Dates: start: 20180808, end: 20180821

REACTIONS (1)
  - Hepatitis B reactivation [Recovered/Resolved]

NARRATIVE: CASE EVENT DATE: 20181129
